FAERS Safety Report 18680889 (Version 1)
Quarter: 2020Q4

REPORT INFORMATION
  Report Type: Spontaneous
  Country: US (occurrence: US)
  Receive Date: 20201229
  Receipt Date: 20201229
  Transmission Date: 20210114
  Serious: No
  Sender: FDA-Public Use
  Company Number: None

PATIENT
  Age: 76 Year
  Sex: Female
  Weight: 68 kg

DRUGS (1)
  1. REMDESIVIR. [Suspect]
     Active Substance: REMDESIVIR
     Indication: COVID-19
     Dosage: ?          OTHER FREQUENCY:ONCE;?
     Route: 041
     Dates: start: 20201229, end: 20201229

REACTIONS (5)
  - Flushing [None]
  - Pruritus [None]
  - Feeling hot [None]
  - Drug hypersensitivity [None]
  - Tinnitus [None]

NARRATIVE: CASE EVENT DATE: 20201229
